FAERS Safety Report 11840728 (Version 1)
Quarter: 2015Q4

REPORT INFORMATION
  Report Type: Spontaneous
  Country: FR (occurrence: FR)
  Receive Date: 20151216
  Receipt Date: 20151216
  Transmission Date: 20160305
  Serious: Yes (Hospitalization)
  Sender: FDA-Public Use
  Company Number: FR-OTSUKA-2015_016731

PATIENT
  Age: 44 Year
  Sex: Female

DRUGS (2)
  1. ABILIFY MAINTENA [Suspect]
     Active Substance: ARIPIPRAZOLE
     Indication: BIPOLAR DISORDER
     Dosage: 400 MG, QM
     Route: 030
     Dates: start: 20150224, end: 20150407
  2. ABILIFY MAINTENA [Suspect]
     Active Substance: ARIPIPRAZOLE
     Dosage: 200 MG, QM
     Route: 030
     Dates: start: 20150407

REACTIONS (7)
  - Impaired work ability [Unknown]
  - Anhedonia [Unknown]
  - Depression [Unknown]
  - Off label use [Unknown]
  - Incorrect dose administered [Unknown]
  - Hypersomnia [Unknown]
  - Apathy [Recovered/Resolved]

NARRATIVE: CASE EVENT DATE: 20150224
